FAERS Safety Report 23879815 (Version 3)
Quarter: 2024Q3

REPORT INFORMATION
  Report Type: Spontaneous
  Country: US (occurrence: US)
  Receive Date: 20240521
  Receipt Date: 20240902
  Transmission Date: 20241016
  Serious: No
  Sender: ASTELLAS
  Company Number: US-ASTELLAS-2024US012723

PATIENT
  Age: 55 Year
  Sex: Female

DRUGS (2)
  1. VEOZAH [Suspect]
     Active Substance: FEZOLINETANT
     Indication: Menopausal symptoms
     Dosage: 45 MG, ONCE DAILY
     Route: 048
     Dates: start: 202312
  2. VEOZAH [Suspect]
     Active Substance: FEZOLINETANT
     Indication: Night sweats

REACTIONS (1)
  - Hot flush [Not Recovered/Not Resolved]

NARRATIVE: CASE EVENT DATE: 20240401
